FAERS Safety Report 4477184-2 (Version None)
Quarter: 2004Q4

REPORT INFORMATION
  Report Type: 
  Country: None (occurrence: None)
  Receive Date: 20041018
  Receipt Date: 20041005
  Transmission Date: 20050328
  Serious: Yes (Hospitalization)
  Sender: FDA-Public Use
  Company Number: DE-MERCK-0410DEU00126

PATIENT
  Age: 58 Year
  Sex: Male

DRUGS (10)
  1. ADEMETIONINE SULFATE TOSYLATE [Concomitant]
     Route: 048
  2. AMYLASE AND BROMELAINS AND CHYMOTRYPSIN AND LIPASE AND PANCREATIN AND [Concomitant]
     Route: 048
  3. ASPIRIN [Concomitant]
     Route: 048
  4. ATORVASTATIN CALCIUM [Concomitant]
     Route: 048
  5. LORMETAZEPAM [Concomitant]
     Route: 048
  6. PANTOPRAZOLE SODIUM [Concomitant]
     Route: 048
  7. PERINDOPRIL ERBUMINE [Concomitant]
     Route: 048
  8. VIOXX [Suspect]
     Indication: OSTEOARTHRITIS
     Route: 048
     Dates: start: 19990101, end: 20040901
  9. SILIBININ [Concomitant]
     Route: 048
  10. TAMSULOSIN HYDROCHLORIDE [Concomitant]
     Route: 048

REACTIONS (1)
  - CARDIAC DISORDER [None]
